FAERS Safety Report 20465339 (Version 1)
Quarter: 2022Q1

REPORT INFORMATION
  Report Type: Spontaneous
  Country: None (occurrence: US)
  Receive Date: 20220212
  Receipt Date: 20220212
  Transmission Date: 20220423
  Serious: Yes (Hospitalization, Other)
  Sender: FDA-Public Use
  Company Number: US-Sunstar Americas Inc.-2125834

PATIENT
  Sex: Male
  Weight: 108.7 kg

DRUGS (88)
  1. PAROEX [Suspect]
     Active Substance: CHLORHEXIDINE GLUCONATE
     Indication: Pharyngitis
     Route: 002
     Dates: start: 202009, end: 20201028
  2. ALBUMIN (HUMAN) [Concomitant]
     Active Substance: ALBUMIN HUMAN
     Route: 042
     Dates: start: 20200919, end: 20201013
  3. ALBUMIN (HUMAN) [Concomitant]
     Active Substance: ALBUMIN HUMAN
     Route: 042
     Dates: start: 20200915, end: 20201006
  4. ALBUMIN (HUMAN) [Concomitant]
     Active Substance: ALBUMIN HUMAN
     Route: 042
     Dates: start: 20201012, end: 20201012
  5. FENTANYL CITRATE [Concomitant]
     Active Substance: FENTANYL CITRATE
     Route: 042
     Dates: start: 20200917, end: 20200928
  6. ACETAMINOPHEN [Concomitant]
     Active Substance: ACETAMINOPHEN
     Route: 042
     Dates: start: 20200929, end: 20200929
  7. ACETAMINOPHEN [Concomitant]
     Active Substance: ACETAMINOPHEN
     Route: 048
     Dates: start: 20201003, end: 20201013
  8. CEFEPIME [Concomitant]
     Active Substance: CEFEPIME HYDROCHLORIDE
     Dates: start: 20201001, end: 20201012
  9. CALCIUM GLUCONATE [Concomitant]
     Active Substance: CALCIUM GLUCONATE
     Route: 042
     Dates: start: 20200915, end: 20201003
  10. CALCIUM CHLORIDE [Concomitant]
     Active Substance: CALCIUM CHLORIDE
     Route: 042
     Dates: start: 20200914, end: 20201004
  11. ANTICOAGULANT CITRATE DEXTROSE SOLUTION-A [Concomitant]
     Active Substance: CITRIC ACID MONOHYDRATE\DEXTROSE\SODIUM CITRATE
     Route: 048
     Dates: start: 20201003, end: 20201004
  12. AMIODARONE HYDROCHLORIDE [Concomitant]
     Active Substance: AMIODARONE HYDROCHLORIDE
     Route: 002
     Dates: start: 20201013, end: 20201013
  13. CISATRACURIUM [Concomitant]
     Active Substance: CISATRACURIUM
     Dates: start: 20200917, end: 20200922
  14. CISATRACURIUM [Concomitant]
     Active Substance: CISATRACURIUM
     Dates: start: 20200914, end: 20200914
  15. DEXTROSE [Concomitant]
     Active Substance: DEXTROSE
     Dates: start: 20200914, end: 20201004
  16. DEXTROSE MONOHYDRATE [Concomitant]
     Active Substance: DEXTROSE MONOHYDRATE
     Route: 042
     Dates: start: 20200914, end: 20200928
  17. DEXTROSE [Concomitant]
     Active Substance: DEXTROSE
     Route: 042
     Dates: start: 20200924, end: 20201012
  18. DEXTROSE [Concomitant]
     Active Substance: DEXTROSE
     Dates: start: 20201010, end: 20201010
  19. DEXTROSE MONOHYDRATE [Concomitant]
     Active Substance: DEXTROSE MONOHYDRATE
     Route: 042
     Dates: start: 20201004, end: 20201010
  20. NOREPINEPHRINE BITARTRATE [Concomitant]
     Active Substance: NOREPINEPHRINE BITARTRATE
     Route: 042
     Dates: start: 20200928, end: 20200928
  21. SODIUM CHLORIDE [Concomitant]
     Active Substance: SODIUM CHLORIDE
     Dates: start: 20200914, end: 20201012
  22. PROPOFOL [Concomitant]
     Active Substance: PROPOFOL
     Route: 042
     Dates: start: 20200922, end: 20200928
  23. SODIUM CHLORIDE [Concomitant]
     Active Substance: SODIUM CHLORIDE
     Dates: start: 20200915, end: 20201009
  24. SODIUM CHLORIDE [Concomitant]
     Active Substance: SODIUM CHLORIDE
     Dates: start: 20200917, end: 20201012
  25. SODIUM CHLORIDE [Concomitant]
     Active Substance: SODIUM CHLORIDE
     Dates: start: 20200914, end: 20201003
  26. FENTANYL CITRATE [Concomitant]
     Active Substance: FENTANYL CITRATE
     Route: 042
     Dates: start: 20200917, end: 20200928
  27. MIDAZOLAM [Concomitant]
     Active Substance: MIDAZOLAM
     Route: 042
     Dates: start: 20200917, end: 20200922
  28. MEROPENEM AND SODIUM CHLORIDE [Concomitant]
     Active Substance: MEROPENEM\SODIUM CHLORIDE
     Route: 042
     Dates: start: 20200917, end: 20200917
  29. HUMULIN R [Concomitant]
     Active Substance: INSULIN HUMAN
     Route: 042
     Dates: start: 20200917, end: 20200917
  30. DESMOPRESSIN ACETATE [Concomitant]
     Active Substance: DESMOPRESSIN ACETATE
     Route: 042
     Dates: start: 20201003, end: 20201003
  31. DIPHENHYDRAMINE [Concomitant]
     Active Substance: DIPHENHYDRAMINE
     Route: 042
     Dates: start: 20201010, end: 20201013
  32. DOCUSATE SODIUM [Concomitant]
     Active Substance: DOCUSATE SODIUM
     Route: 048
     Dates: start: 20200916, end: 20201012
  33. ERYTHROMYCIN [Concomitant]
     Active Substance: ERYTHROMYCIN
     Dates: start: 20201003, end: 20201006
  34. ERYTHROMYCIN [Concomitant]
     Active Substance: ERYTHROMYCIN
     Dates: start: 20201008, end: 20201008
  35. EPOGEN [Concomitant]
     Active Substance: ERYTHROPOIETIN
     Route: 042
     Dates: start: 20201003, end: 20201006
  36. FAMOTIDINE [Concomitant]
     Active Substance: FAMOTIDINE
     Route: 042
     Dates: start: 20200914, end: 20200921
  37. EPOGEN [Concomitant]
     Active Substance: ERYTHROPOIETIN
     Route: 042
     Dates: start: 20201008, end: 20201008
  38. EPOPROSTENOL [Concomitant]
     Active Substance: EPOPROSTENOL
     Route: 042
     Dates: start: 20200917, end: 20200918
  39. FUROSEMIDE [Concomitant]
     Active Substance: FUROSEMIDE
     Route: 042
     Dates: start: 20200916, end: 20200916
  40. HEPARIN SODIUM [Concomitant]
     Active Substance: HEPARIN SODIUM
     Route: 042
     Dates: start: 20200928, end: 20200928
  41. OMNIPAQUE [Concomitant]
     Active Substance: IOHEXOL
     Dates: start: 20201004, end: 20201012
  42. HEPARIN SODIUM [Concomitant]
     Active Substance: HEPARIN SODIUM
     Route: 042
     Dates: start: 20200923, end: 20200924
  43. GLYCOPYRROLATE [Concomitant]
     Active Substance: GLYCOPYRROLATE
     Route: 042
     Dates: start: 20201008, end: 20201008
  44. LACTATED RINGERS SOLUTION [Concomitant]
     Active Substance: CALCIUM CHLORIDE\POTASSIUM CHLORIDE\SODIUM CHLORIDE\SODIUM LACTATE
     Route: 042
     Dates: start: 20200917, end: 20200917
  45. BALANCED SALT [Concomitant]
     Active Substance: CALCIUM CHLORIDE\MAGNESIUM CHLORIDE\POTASSIUM CHLORIDE\SODIUM ACETATE\SODIUM CHLORIDE\SODIUM CITRATE
     Dates: start: 20200919, end: 20200926
  46. LABETALOL [Concomitant]
     Active Substance: LABETALOL\LABETALOL HYDROCHLORIDE
     Dates: start: 20200920, end: 20200925
  47. LIDOCAINE [Concomitant]
     Active Substance: LIDOCAINE
     Route: 042
     Dates: start: 20200925, end: 20200925
  48. VANCOMYCIN HYDROCHLORIDE [Concomitant]
     Active Substance: VANCOMYCIN HYDROCHLORIDE
     Route: 042
     Dates: start: 20200915, end: 20201012
  49. SODIUM BICARBONATE [Concomitant]
     Active Substance: SODIUM BICARBONATE
     Route: 042
     Dates: start: 20200916, end: 20201003
  50. SODIUM PHOSPHATES [Concomitant]
     Active Substance: SODIUM PHOSPHATE, DIBASIC, ANHYDROUS\SODIUM PHOSPHATE, DIBASIC, HEPTAHYDRATE\SODIUM PHOSPHATE, MONOB
     Route: 042
     Dates: start: 20201004, end: 20201010
  51. THIAMINE [Concomitant]
     Active Substance: THIAMINE
     Dates: start: 20200921, end: 20201006
  52. SENNA LIQUID [Concomitant]
     Active Substance: SENNOSIDES
     Route: 048
     Dates: start: 20200928, end: 20200928
  53. ROCURONIUM [Concomitant]
     Active Substance: ROCURONIUM BROMIDE
     Dates: start: 20201012, end: 20201013
  54. MAGNESIUM SULFATE IN WATER [Concomitant]
     Active Substance: MAGNESIUM SULFATE HEPTAHYDRATE
     Route: 042
     Dates: start: 20200915, end: 20201010
  55. MIDODRINE HYDROCHLORIDE [Concomitant]
     Active Substance: MIDODRINE HYDROCHLORIDE
     Dates: start: 20200914, end: 20200926
  56. MEROPENEM [Concomitant]
     Active Substance: MEROPENEM
     Route: 042
     Dates: start: 20200914, end: 20201001
  57. METOPROLOL [Concomitant]
     Active Substance: METOPROLOL
     Route: 042
     Dates: start: 20200914, end: 20201001
  58. MICAFUNGIN. [Concomitant]
     Active Substance: MICAFUNGIN SODIUM
     Route: 042
     Dates: start: 20200915, end: 20200929
  59. METRONIDAZOLE [Concomitant]
     Active Substance: METRONIDAZOLE
     Route: 042
     Dates: start: 20201001, end: 20201012
  60. LORAZEPAM [Concomitant]
     Active Substance: LORAZEPAM
     Route: 042
     Dates: start: 20201007, end: 20201013
  61. QUETIAPINE [Concomitant]
     Active Substance: QUETIAPINE
     Route: 002
     Dates: start: 20201012, end: 20201013
  62. MUPIROCIN [Concomitant]
     Active Substance: MUPIROCIN
     Route: 045
     Dates: start: 20200914, end: 20200919
  63. MIRALAX [Concomitant]
     Active Substance: POLYETHYLENE GLYCOL 3350
     Route: 048
     Dates: start: 20201007, end: 20201012
  64. OLANZAPINE [Concomitant]
     Active Substance: OLANZAPINE
     Route: 048
     Dates: start: 20201003, end: 20201012
  65. OXYCODONE. [Concomitant]
     Active Substance: OXYCODONE HYDROCHLORIDE
     Route: 048
     Dates: start: 20201009, end: 20201013
  66. PANTOPRAZOLE SODIUM [Concomitant]
     Active Substance: PANTOPRAZOLE SODIUM
     Route: 042
     Dates: start: 20200921, end: 20201013
  67. PHENYLEPHRINE [Concomitant]
     Active Substance: PHENYLEPHRINE HYDROCHLORIDE
     Route: 042
     Dates: start: 20200917, end: 20200928
  68. HYDROMORPHONE HCL [Concomitant]
     Active Substance: HYDROMORPHONE HYDROCHLORIDE
     Route: 042
     Dates: start: 20201007, end: 20201013
  69. DILAUDID [Concomitant]
     Active Substance: HYDROMORPHONE HYDROCHLORIDE
     Route: 042
     Dates: start: 20200929, end: 20200929
  70. AMIODARONE HYDROCHLORIDE [Concomitant]
     Active Substance: AMIODARONE HYDROCHLORIDE
     Route: 042
     Dates: start: 20201002, end: 20201008
  71. AMIODARONE HYDROCHLORIDE [Concomitant]
     Active Substance: AMIODARONE HYDROCHLORIDE
     Route: 042
     Dates: start: 20201002, end: 20201002
  72. FENTANYL CITRATE [Concomitant]
     Active Substance: FENTANYL CITRATE
     Route: 042
     Dates: start: 20200914, end: 20201004
  73. DEXMEDETOMIDINE HYDROCHLORIDE [Concomitant]
     Active Substance: DEXMEDETOMIDINE HYDROCHLORIDE
     Route: 042
     Dates: start: 20201006, end: 20201013
  74. EPOGEN [Concomitant]
     Active Substance: ERYTHROPOIETIN
     Route: 042
     Dates: start: 20201010, end: 20201010
  75. RETACRIT [Concomitant]
     Active Substance: EPOETIN ALFA-EPBX
     Route: 042
     Dates: start: 20201013, end: 20201013
  76. RETACRIT [Concomitant]
     Active Substance: EPOETIN ALFA-EPBX
     Route: 042
     Dates: start: 20201010, end: 20201010
  77. RETACRIT [Concomitant]
     Active Substance: EPOETIN ALFA-EPBX
     Route: 042
     Dates: start: 20201010, end: 20201010
  78. HEPARIN SODIUM AND SODIUM CHLORIDE [Concomitant]
     Active Substance: HEPARIN SODIUM
     Route: 042
     Dates: start: 20200924, end: 20201013
  79. POTASSIUM CHLORIDE [Concomitant]
     Active Substance: POTASSIUM CHLORIDE
     Route: 042
     Dates: start: 20200929, end: 20201003
  80. ROCURONIUM BROMIDE [Concomitant]
     Active Substance: ROCURONIUM BROMIDE
     Route: 042
     Dates: start: 20200920, end: 20200928
  81. OMNIPAQUE [Concomitant]
     Active Substance: IOHEXOL
     Route: 048
     Dates: start: 20201004, end: 20201012
  82. SODIUM CHLORIDE [Concomitant]
     Active Substance: SODIUM CHLORIDE
     Route: 042
     Dates: start: 20200927, end: 20200928
  83. NOREPINEPHRINE BITARTRATE [Concomitant]
     Active Substance: NOREPINEPHRINE BITARTRATE
     Route: 042
     Dates: start: 20200914, end: 20201013
  84. VANCOMYCIN HYDROCHLORIDE [Concomitant]
     Active Substance: VANCOMYCIN HYDROCHLORIDE
     Route: 042
     Dates: start: 20200924, end: 20201001
  85. VANCOMYCIN HYDROCHLORIDE [Concomitant]
     Active Substance: VANCOMYCIN HYDROCHLORIDE
     Route: 042
     Dates: start: 20200921, end: 20201002
  86. VANCOMYCIN HYDROCHLORIDE [Concomitant]
     Active Substance: VANCOMYCIN HYDROCHLORIDE
     Route: 042
     Dates: start: 20200916, end: 20201021
  87. VANCOMYCIN HYDROCHLORIDE [Concomitant]
     Active Substance: VANCOMYCIN HYDROCHLORIDE
     Route: 042
     Dates: start: 20200923, end: 20201010
  88. VASOPRESSIN [Concomitant]
     Active Substance: VASOPRESSIN
     Route: 042
     Dates: start: 20200914, end: 20200914

REACTIONS (4)
  - Alcoholic pancreatitis [Unknown]
  - Acute kidney injury [Unknown]
  - Respiratory failure [Unknown]
  - Bacterial infection [Unknown]

NARRATIVE: CASE EVENT DATE: 20200911
